FAERS Safety Report 15467353 (Version 1)
Quarter: 2018Q4

REPORT INFORMATION
  Report Type: Spontaneous
  Country: US (occurrence: US)
  Receive Date: 20181005
  Receipt Date: 20181005
  Transmission Date: 20190204
  Serious: No
  Sender: FDA-Public Use
  Company Number: US-JNJFOC-20180921728

PATIENT
  Age: 31 Year
  Sex: Female

DRUGS (2)
  1. OXYBUTYNIN HYDROCHLORIDE [Suspect]
     Active Substance: OXYBUTYNIN CHLORIDE
     Indication: PRODUCT USED FOR UNKNOWN INDICATION
     Route: 065
  2. DITROPAN XL [Suspect]
     Active Substance: OXYBUTYNIN CHLORIDE
     Indication: PRODUCT USED FOR UNKNOWN INDICATION
     Dosage: AT NIGHT
     Route: 048

REACTIONS (4)
  - Product availability issue [Unknown]
  - Nausea [Recovered/Resolved]
  - Urine output increased [Recovered/Resolved]
  - Underdose [Unknown]

NARRATIVE: CASE EVENT DATE: 2018
